FAERS Safety Report 11781504 (Version 1)
Quarter: 2015Q4

REPORT INFORMATION
  Report Type: Spontaneous
  Country: BR (occurrence: BR)
  Receive Date: 20151126
  Receipt Date: 20151126
  Transmission Date: 20160305
  Serious: Yes (Other)
  Sender: FDA-Public Use
  Company Number: BR-JNJFOC-20151123906

PATIENT
  Age: 80 Year
  Sex: Female

DRUGS (1)
  1. DUROGESIC D-TRANS [Suspect]
     Active Substance: FENTANYL
     Indication: PAIN
     Route: 062
     Dates: start: 201507, end: 201507

REACTIONS (4)
  - Fatigue [Unknown]
  - Hallucination [Unknown]
  - Areflexia [Unknown]
  - Euphoric mood [Unknown]

NARRATIVE: CASE EVENT DATE: 201507
